FAERS Safety Report 18490398 (Version 1)
Quarter: 2020Q4

REPORT INFORMATION
  Report Type: Spontaneous
  Country: US (occurrence: US)
  Receive Date: 20201111
  Receipt Date: 20201111
  Transmission Date: 20210114
  Serious: No
  Sender: FDA-Public Use
  Company Number: US-BAYER-2020-244145

PATIENT
  Age: 82 Year
  Sex: Female

DRUGS (1)
  1. MIRALAX [Suspect]
     Active Substance: POLYETHYLENE GLYCOL 3350
     Indication: GASTROINTESTINAL DISORDER
     Dosage: A QUARTER OF A TEASPOON, HS
     Route: 048
     Dates: start: 202010

REACTIONS (2)
  - Incorrect dose administered [Unknown]
  - Frequent bowel movements [None]

NARRATIVE: CASE EVENT DATE: 2020
